FAERS Safety Report 9371609 (Version 1)
Quarter: 2013Q2

REPORT INFORMATION
  Report Type: Spontaneous
  Country: FR (occurrence: FR)
  Receive Date: 20130627
  Receipt Date: 20130627
  Transmission Date: 20140414
  Serious: Yes (Life-Threatening, Other)
  Sender: FDA-Public Use
  Company Number: PHHY2013FR065441

PATIENT
  Sex: Male

DRUGS (2)
  1. EXFORGE [Suspect]
     Indication: HYPERTENSION
     Dosage: UNK UKN, UNK
     Route: 064
     Dates: end: 20120606
  2. ALDOMET [Concomitant]
     Indication: HYPERTENSION
     Dosage: UNK UKN, UNK
     Route: 064
     Dates: start: 20120606

REACTIONS (7)
  - Ultrasound antenatal screen abnormal [Not Recovered/Not Resolved]
  - Foetal distress syndrome [Recovered/Resolved]
  - Nephropathy [Not Recovered/Not Resolved]
  - Foetal exposure during pregnancy [Unknown]
  - Kidney small [Not Recovered/Not Resolved]
  - Ultrasound kidney abnormal [Not Recovered/Not Resolved]
  - Foetal disorder [Recovered/Resolved]
